FAERS Safety Report 6764036-8 (Version None)
Quarter: 2010Q2

REPORT INFORMATION
  Report Type: 
  Country: None (occurrence: None)
  Receive Date: 20100610
  Receipt Date: 20090527
  Transmission Date: 20101027
  Serious: Yes (Hospitalization)
  Sender: FDA-Public Use
  Company Number: US-ASTRAZENECA-2009UW13414

PATIENT
  Age: 63 Year
  Sex: Female

DRUGS (3)
  1. FASLODEX [Suspect]
     Route: 030
  2. HCTZ [Concomitant]
  3. FOSAMAX [Concomitant]

REACTIONS (2)
  - HEADACHE [None]
  - LYMPHADENOPATHY [None]
